FAERS Safety Report 7004997-5 (Version None)
Quarter: 2010Q3

REPORT INFORMATION
  Report Type: 
  Country: None (occurrence: None)
  Receive Date: 20100920
  Receipt Date: 20100920
  Transmission Date: 20110219
  Serious: Yes (Other)
  Sender: FDA-Public Use
  Company Number: None

PATIENT
  Age: 58 Year
  Sex: Female
  Weight: 53.978 kg

DRUGS (1)
  1. RECLAST [Suspect]
     Indication: OSTEOPOROSIS
     Dosage: ONCE IV DRIP
     Route: 041
     Dates: start: 20100410, end: 20100410

REACTIONS (5)
  - ARTHRALGIA [None]
  - GINGIVAL SWELLING [None]
  - INFLAMMATION [None]
  - INJURY [None]
  - OSTEONECROSIS OF JAW [None]
